FAERS Safety Report 15607015 (Version 2)
Quarter: 2019Q1

REPORT INFORMATION
  Report Type: Report from Study
  Country: JP (occurrence: JP)
  Receive Date: 20181112
  Receipt Date: 20190322
  Transmission Date: 20190417
  Serious: Yes (Other)
  Sender: FDA-Public Use
  Company Number: JP-ROCHE-2211357

PATIENT

DRUGS (1)
  1. RITUXIMAB. [Suspect]
     Active Substance: RITUXIMAB
     Indication: B-CELL LYMPHOMA
     Dosage: ON DAY 1 OF FOUR 7-DAY CYCLES (INDUCTION PERIOD).?EVERY 8 WEEKS FOR SIX CYCLES (MAINTENACE)
     Route: 042

REACTIONS (7)
  - Acute kidney injury [Unknown]
  - Genital prolapse [Unknown]
  - Pneumonia [Unknown]
  - Neutropenia [Unknown]
  - Upper respiratory tract infection [Unknown]
  - Urinary tract infection [Unknown]
  - Infusion related reaction [Unknown]
